FAERS Safety Report 4942794-2 (Version None)
Quarter: 2006Q1

REPORT INFORMATION
  Report Type: 
  Country: None (occurrence: None)
  Receive Date: 20060314
  Receipt Date: 20060302
  Transmission Date: 20060701
  Serious: Yes (Other)
  Sender: FDA-Public Use
  Company Number: HR-JNJFOC-20060301169

PATIENT
  Sex: Female
  Weight: 118 kg

DRUGS (4)
  1. DURAGESIC-100 [Suspect]
     Route: 062
     Dates: start: 20060202, end: 20060203
  2. VOLTAREN [Concomitant]
     Route: 030
  3. DIAZEPAM [Concomitant]
     Route: 048
  4. CILAZIL PLUS [Concomitant]
     Dosage: 5+12.5MG/DAILY
     Route: 048

REACTIONS (8)
  - BLOOD PRESSURE INCREASED [None]
  - DIZZINESS [None]
  - FLUSHING [None]
  - GAIT DISTURBANCE [None]
  - HEART RATE INCREASED [None]
  - NAUSEA [None]
  - STUPOR [None]
  - VOMITING [None]
